FAERS Safety Report 10890862 (Version 4)
Quarter: 2015Q4

REPORT INFORMATION
  Report Type: Report from Study
  Country: US (occurrence: US)
  Receive Date: 20150305
  Receipt Date: 20151005
  Transmission Date: 20160304
  Serious: Yes (Hospitalization, Other)
  Sender: FDA-Public Use
  Company Number: US-AMGEN-USASP2015019789

PATIENT
  Age: 73 Year
  Sex: Male

DRUGS (2)
  1. ENBREL [Suspect]
     Active Substance: ETANERCEPT
     Indication: RHEUMATOID ARTHRITIS
  2. ENBREL [Suspect]
     Active Substance: ETANERCEPT
     Indication: PSORIASIS
     Dosage: 50 MG, QWK
     Route: 065
     Dates: start: 20040601

REACTIONS (16)
  - Gastric haemorrhage [Unknown]
  - Malaise [Unknown]
  - Gastric varices [Unknown]
  - Gastrointestinal disorder [Unknown]
  - Platelet count decreased [Unknown]
  - Cystitis [Recovered/Resolved]
  - Feeling abnormal [Recovering/Resolving]
  - Diarrhoea [Unknown]
  - Alcohol use [Unknown]
  - Ammonia increased [Unknown]
  - Night sweats [Recovered/Resolved]
  - Constipation [Not Recovered/Not Resolved]
  - Varices oesophageal [Unknown]
  - Prostate infection [Recovered/Resolved]
  - Liver disorder [Unknown]
  - Hepatic cirrhosis [Unknown]

NARRATIVE: CASE EVENT DATE: 2013
